FAERS Safety Report 11071517 (Version 1)
Quarter: 2015Q2

REPORT INFORMATION
  Report Type: Spontaneous
  Country: US (occurrence: US)
  Receive Date: 20150428
  Receipt Date: 20150428
  Transmission Date: 20150821
  Serious: No
  Sender: FDA-Public Use
  Company Number: US-PFIZER INC-2015141812

PATIENT
  Age: 53 Year
  Sex: Female
  Weight: 86 kg

DRUGS (2)
  1. XELJANZ [Suspect]
     Active Substance: TOFACITINIB CITRATE
     Indication: RHEUMATOID ARTHRITIS
     Dosage: 5 MG, 2X/DAY
     Dates: start: 20150408, end: 20150418
  2. TOPIRAMATE. [Concomitant]
     Active Substance: TOPIRAMATE
     Indication: MIGRAINE
     Dosage: UNK, 2X/DAY (25MG, ONE IN THE MORNING AND TWO AT NIGHT)

REACTIONS (3)
  - Nervousness [Recovering/Resolving]
  - Anxiety [Recovering/Resolving]
  - Palpitations [Recovering/Resolving]
